FAERS Safety Report 23435893 (Version 1)
Quarter: 2024Q1

REPORT INFORMATION
  Report Type: Spontaneous
  Country: GB (occurrence: GB)
  Receive Date: 20240124
  Receipt Date: 20240124
  Transmission Date: 20240410
  Serious: Yes (Disabling)
  Sender: FDA-Public Use
  Company Number: None

PATIENT
  Age: 1 Hour

DRUGS (12)
  1. INDAPAMIDE [Suspect]
     Active Substance: INDAPAMIDE
     Indication: Adverse drug reaction
     Dosage: 2.5MG ONE DAILY;
     Route: 065
     Dates: end: 20230119
  2. OMEPRAZOLE [Concomitant]
     Active Substance: OMEPRAZOLE
  3. PREGABALIN [Concomitant]
     Active Substance: PREGABALIN
  4. MIRTAZAPINE [Concomitant]
     Active Substance: MIRTAZAPINE
  5. ASPIRIN [Concomitant]
     Active Substance: ASPIRIN
  6. BISOPROLOL [Concomitant]
     Active Substance: BISOPROLOL\BISOPROLOL FUMARATE
  7. EZETIMIBE [Concomitant]
     Active Substance: EZETIMIBE
  8. RYBELSUS [Concomitant]
     Active Substance: SEMAGLUTIDE
  9. MOXONIDINE [Concomitant]
     Active Substance: MOXONIDINE
  10. BETAHISTINE [Concomitant]
     Active Substance: BETAHISTINE
  11. DAPAGLIFLOZIN [Concomitant]
     Active Substance: DAPAGLIFLOZIN
  12. LOSARTAN [Concomitant]
     Active Substance: LOSARTAN

REACTIONS (2)
  - Liver injury [Not Recovered/Not Resolved]
  - Medication error [Unknown]

NARRATIVE: CASE EVENT DATE: 19560217
